FAERS Safety Report 8134026-1 (Version None)
Quarter: 2012Q1

REPORT INFORMATION
  Report Type: 
  Country: None (occurrence: None)
  Receive Date: 20120214
  Receipt Date: 20120203
  Transmission Date: 20120608
  Serious: Yes (Hospitalization)
  Sender: FDA-Public Use
  Company Number: AU-BRISTOL-MYERS SQUIBB COMPANY-16385981

PATIENT
  Age: 80 Year
  Sex: Male

DRUGS (6)
  1. BLINDED: SAXAGLIPTIN [Suspect]
     Indication: TYPE 2 DIABETES MELLITUS
     Dosage: INTERR 13NOV10
     Dates: start: 20101112, end: 20101113
  2. METFORMIN HCL [Suspect]
     Indication: TYPE 2 DIABETES MELLITUS
  3. JANUVIA [Suspect]
     Indication: TYPE 2 DIABETES MELLITUS
  4. WARFARIN SODIUM [Suspect]
  5. ASPIRIN [Concomitant]
  6. BLINDED: PLACEBO [Suspect]
     Indication: TYPE 2 DIABETES MELLITUS

REACTIONS (1)
  - DUODENAL ULCER [None]
